FAERS Safety Report 7321911-3 (Version None)
Quarter: 2011Q1

REPORT INFORMATION
  Report Type: 
  Country: None (occurrence: None)
  Receive Date: 20110228
  Receipt Date: 20110221
  Transmission Date: 20110831
  Serious: Yes (Hospitalization)
  Sender: FDA-Public Use
  Company Number: SE-ROCHE-761194

PATIENT
  Sex: Male

DRUGS (10)
  1. INSULIN [Concomitant]
     Route: 065
  2. ENALAPRIL [Concomitant]
     Route: 065
  3. CAPECITABINE [Suspect]
     Indication: GASTRIC CANCER
     Dosage: FREQUENCY: BID FOR 2WKS, 3WKS BID 5XPWK, 5WKS LAST DOSE PRIOR TO EVENT 01 JUL 2010
     Route: 048
     Dates: start: 20100524
  4. EPIRUBICIN [Suspect]
     Indication: GASTRIC CANCER
     Dosage: LAST DOSE PRIOR TO EVENT 12 JUL 2010
     Route: 042
     Dates: start: 20100524
  5. CYANOCOBALAMIN [Concomitant]
     Dosage: DOSE FORM UNKNOWN
     Route: 065
  6. OXALIPLATIN [Suspect]
     Indication: GASTRIC CANCER
     Dosage: FREQUENCY: Q3W/Q1W, 5 WKS LAST DOSE PRIOR TO EVENT 12 JUL 2010
     Route: 042
     Dates: start: 20100524
  7. IRON [Concomitant]
     Route: 065
  8. NOVOMIX [Concomitant]
     Route: 065
  9. ASPIRIN [Concomitant]
     Route: 065
  10. SIMVASTATIN [Concomitant]
     Route: 065

REACTIONS (1)
  - DYSPHAGIA [None]
